FAERS Safety Report 24709873 (Version 1)
Quarter: 2024Q4

REPORT INFORMATION
  Report Type: Other
  Country: IN (occurrence: IN)
  Receive Date: 20241209
  Receipt Date: 20241209
  Transmission Date: 20250115
  Serious: Yes (Death)
  Sender: BIONPHARMA INC.
  Company Number: IN-Bion-014490

PATIENT

DRUGS (5)
  1. DEXAMETHASONE [Suspect]
     Active Substance: DEXAMETHASONE
     Indication: Langerhans^ cell histiocytosis
  2. VEMURAFENIB [Concomitant]
     Active Substance: VEMURAFENIB
     Indication: Langerhans^ cell histiocytosis
  3. LENALIDOMIDE [Concomitant]
     Active Substance: LENALIDOMIDE
     Indication: Langerhans^ cell histiocytosis
  4. VINCRISTINE [Concomitant]
     Active Substance: VINCRISTINE
     Indication: Langerhans^ cell histiocytosis
  5. ETOPOSIDE [Concomitant]
     Active Substance: ETOPOSIDE
     Indication: Langerhans^ cell histiocytosis

REACTIONS (1)
  - Drug ineffective for unapproved indication [Fatal]
